FAERS Safety Report 6526118-5 (Version None)
Quarter: 2010Q1

REPORT INFORMATION
  Report Type: 
  Country: None (occurrence: None)
  Receive Date: 20100104
  Receipt Date: 20091222
  Transmission Date: 20100710
  Serious: Yes (Other)
  Sender: FDA-Public Use
  Company Number: GB-PFIZER INC-2009308842

PATIENT
  Age: 25 Year
  Sex: Female

DRUGS (6)
  1. CYCLOPHOSPHAMIDE [Suspect]
     Indication: VASCULITIS
     Dosage: 1 G, UNK
     Route: 050
  2. METHYLPREDNISOLONE AND METHYLPREDNISOLONE ACETATE AND METHYLPREDNISOLO [Suspect]
     Indication: VASCULITIS
     Dosage: 1 G, UNK
     Route: 050
  3. PREDNISOLONE AND PREDNISOLONE STEAGLATE [Suspect]
     Dosage: 60 MG, UNK
     Route: 050
  4. BETAMETHASONE [Suspect]
     Indication: MATERNAL THERAPY TO ENHANCE FOETAL LUNG MATURITY
     Dosage: 12 MG, UNK
     Route: 050
  5. CO-TRIMOXAZOLE [Suspect]
     Indication: PROPHYLAXIS
     Route: 050
  6. INSULIN [Concomitant]
     Route: 050

REACTIONS (1)
  - PREMATURE LABOUR [None]
